FAERS Safety Report 8992845 (Version 1)
Quarter: 2013Q1

REPORT INFORMATION
  Report Type: Spontaneous
  Country: US (occurrence: US)
  Receive Date: 20130102
  Receipt Date: 20130102
  Transmission Date: 20140127
  Serious: Yes (Hospitalization)
  Sender: FDA-Public Use
  Company Number: US-BAYER-2012-136337

PATIENT
  Age: 31 Year
  Sex: Female
  Weight: 74.61 kg

DRUGS (8)
  1. YASMIN [Suspect]
  2. BENTYL [Concomitant]
  3. DESYREL [Concomitant]
  4. XANAX [Concomitant]
  5. CELEXA [Concomitant]
  6. LORTAB [Concomitant]
  7. NSAID^S [Concomitant]
  8. NARCOTIC PAIN MEDICATION [Concomitant]

REACTIONS (4)
  - Deep vein thrombosis [None]
  - Pulmonary embolism [None]
  - Thrombophlebitis superficial [None]
  - Pulmonary infarction [None]
